FAERS Safety Report 9257108 (Version 1)
Quarter: 2013Q2

REPORT INFORMATION
  Report Type: Spontaneous
  Country: FR (occurrence: None)
  Receive Date: 20130424
  Receipt Date: 20130424
  Transmission Date: 20140414
  Serious: Yes (Hospitalization)
  Sender: FDA-Public Use
  Company Number: SYM-2013-02840

PATIENT
  Age: 90 Year
  Sex: Female

DRUGS (7)
  1. FLAGYL [Suspect]
     Indication: PRODUCT USED FOR UNKNOWN INDICATION
     Route: 048
     Dates: start: 20130113, end: 20130123
  2. ROCEPHINE [Suspect]
     Indication: PRODUCT USED FOR UNKNOWN INDICATION
     Route: 048
     Dates: start: 20130113, end: 20130123
  3. PREVISCAN (FLUINDIONE) (FLUINDIONE) [Suspect]
     Indication: ATRIAL FIBRILLATION
     Route: 048
     Dates: end: 20130123
  4. CORDARONE (AMIODARONE HYDROCHLORIDE) (AMIODARONE HYDROCHLORIDE) [Concomitant]
  5. LERCAN (LERCANIDIPINE HYDROCHLORIDE) (LERCANIDIPINE HYDROCHLORIDE) [Concomitant]
  6. KALEORID (POTASSIUM CHLORIDE) (POTASSIUM CHLORIDE) [Concomitant]
  7. PARIET (RABEPRAZOLE SODIUM) (RABEPRAZOLE SODIUM) [Concomitant]

REACTIONS (6)
  - Cerebellar haematoma [None]
  - Acute pulmonary oedema [None]
  - Atrial fibrillation [None]
  - Condition aggravated [None]
  - Vomiting [None]
  - General physical health deterioration [None]
